FAERS Safety Report 8798826 (Version 6)
Quarter: 2013Q1

REPORT INFORMATION
  Report Type: Spontaneous
  Country: US (occurrence: US)
  Receive Date: 20120920
  Receipt Date: 20130227
  Transmission Date: 20140127
  Serious: Yes (Death, Hospitalization, Disabling, Other)
  Sender: FDA-Public Use
  Company Number: US-GLAXOSMITHKLINE-A0992825A

PATIENT
  Age: 49 Year
  Sex: Female
  Weight: 47.9 kg

DRUGS (19)
  1. FLOLAN [Suspect]
     Indication: PRODUCT USED FOR UNKNOWN INDICATION
     Dosage: 79NGKM CONTINUOUS
     Route: 042
     Dates: start: 20000414, end: 20120927
  2. SPIRONOLACTONE [Concomitant]
  3. OXYGEN [Concomitant]
  4. VELETRI [Concomitant]
  5. MORPHINE [Concomitant]
  6. CHOLECALCIFEROL [Concomitant]
  7. ALENDRONATE [Concomitant]
  8. POTASSIUM CHLORIDE [Concomitant]
  9. MULTIVITAMIN WITH MINERALS [Concomitant]
  10. FERROUS SULFATE [Concomitant]
  11. FUROSEMIDE [Concomitant]
  12. ASPIRIN [Concomitant]
  13. BUPROPION [Concomitant]
  14. PAROXETINE [Concomitant]
  15. OXYCODONE [Concomitant]
  16. IBUPROFEN [Concomitant]
  17. PROMETHAZINE [Concomitant]
  18. ACETAMINOPHEN [Concomitant]
  19. ONDANSETRON [Concomitant]

REACTIONS (26)
  - Cellulitis [Recovered/Resolved]
  - Hepatic cirrhosis [Recovered/Resolved]
  - Portal hypertension [Recovered/Resolved]
  - Bile duct obstruction [Unknown]
  - Ascites [Unknown]
  - Pulmonary arterial hypertension [Unknown]
  - Biliary dilatation [Unknown]
  - Portopulmonary hypertension [Unknown]
  - Chronic respiratory failure [Unknown]
  - Death [Fatal]
  - Tachycardia [Recovered/Resolved]
  - Malaise [Recovered/Resolved]
  - Impaired healing [Recovered/Resolved]
  - Atrial fibrillation [Recovered/Resolved]
  - Atrial flutter [Recovering/Resolving]
  - Cholelithiasis [Recovering/Resolving]
  - Aspartate aminotransferase increased [Recovered/Resolved]
  - Nausea [Recovered/Resolved]
  - Blood alkaline phosphatase increased [Recovered/Resolved]
  - Blood albumin decreased [Unknown]
  - Pleural effusion [Unknown]
  - Abdominal pain upper [Recovered/Resolved]
  - Neoplasm [Unknown]
  - Gastric varices [Unknown]
  - Headache [Unknown]
  - Fatigue [Unknown]
